FAERS Safety Report 23608925 (Version 1)
Quarter: 2024Q1

REPORT INFORMATION
  Report Type: Spontaneous
  Country: AT (occurrence: AT)
  Receive Date: 20240308
  Receipt Date: 20240308
  Transmission Date: 20240410
  Serious: Yes (Other)
  Sender: FDA-Public Use
  Company Number: AT-SA-SAC20230523001494

PATIENT
  Sex: Female

DRUGS (4)
  1. DUPIXENT [Suspect]
     Active Substance: DUPILUMAB
     Indication: Neurodermatitis
     Dosage: UNK UNK, QOW
     Route: 065
     Dates: start: 20210708, end: 202203
  2. COVID-19 VACCINE NOS [Suspect]
     Active Substance: COVID-19 VACCINE NOS
     Indication: Immunisation
     Dosage: UNK
     Dates: start: 20230512
  3. PFIZER-BIONTECH COVID-19 VACCINE [Concomitant]
     Active Substance: TOZINAMERAN
     Dosage: UNK
     Dates: start: 20211109
  4. PFIZER-BIONTECH COVID-19 VACCINE [Concomitant]
     Active Substance: TOZINAMERAN
     Dosage: UNK
     Dates: start: 20211213

REACTIONS (10)
  - Conjunctival adhesion [Unknown]
  - Vitreous opacities [Not Recovered/Not Resolved]
  - Visual impairment [Unknown]
  - Conjunctival disorder [Unknown]
  - Condition aggravated [Not Recovered/Not Resolved]
  - Illusion [Unknown]
  - Muscle spasms [Unknown]
  - Scar [Unknown]
  - Vascular injury [Unknown]
  - Dry eye [Unknown]

NARRATIVE: CASE EVENT DATE: 20230501
